FAERS Safety Report 9106706 (Version 2)
Quarter: 2013Q3

REPORT INFORMATION
  Report Type: Report from Study
  Country: JP (occurrence: JP)
  Receive Date: 20130221
  Receipt Date: 20130802
  Transmission Date: 20140515
  Serious: Yes (Hospitalization)
  Sender: FDA-Public Use
  Company Number: PHHY2013JP016117

PATIENT
  Age: 40 Year
  Sex: Female

DRUGS (9)
  1. FTY 720 [Suspect]
     Indication: MULTIPLE SCLEROSIS
     Dosage: 0.5 MG, QD
     Route: 048
     Dates: start: 20120621, end: 20120918
  2. PREDNISOLON [Concomitant]
     Dosage: 30 MG, Q48H
     Route: 048
     Dates: start: 20110112, end: 20111227
  3. PREDNISOLON [Concomitant]
     Dosage: 27.5 MG, DAILY
     Route: 048
     Dates: start: 20111228
  4. GAMOFA [Concomitant]
     Dosage: 40 MG, UNK
     Route: 048
  5. MUCOSTA [Concomitant]
     Dosage: 300 MG, UNK
     Route: 048
  6. DEPAS [Concomitant]
     Dosage: 0.5 MG, UNK
     Route: 048
  7. TEGRETOL [Concomitant]
     Dosage: 350 MG, UNK
     Route: 048
  8. MAGMITT [Concomitant]
     Dosage: 660 MG, UNK
     Route: 048
  9. LOBU [Concomitant]
     Dosage: 60 MG, PRN
     Route: 048

REACTIONS (1)
  - Optic neuritis [Recovering/Resolving]
